FAERS Safety Report 6589463-3 (Version None)
Quarter: 2010Q1

REPORT INFORMATION
  Report Type: 
  Country: None (occurrence: None)
  Receive Date: 20100218
  Receipt Date: 20100217
  Transmission Date: 20100710
  Serious: Yes (Hospitalization)
  Sender: FDA-Public Use
  Company Number: DE-MERCK-1002DEU00090

PATIENT
  Sex: Male

DRUGS (3)
  1. ZOCOR [Suspect]
     Indication: ARTERIOSCLEROSIS
     Route: 048
  2. DILTIAZEM HYDROCHLORIDE [Suspect]
     Route: 048
  3. SANDIMMUNE [Suspect]
     Indication: HEART TRANSPLANT
     Route: 048
     Dates: start: 20030101

REACTIONS (2)
  - NAUSEA [None]
  - SOMNOLENCE [None]
